FAERS Safety Report 7465932-9 (Version None)
Quarter: 2011Q2

REPORT INFORMATION
  Report Type: 
  Country: None (occurrence: None)
  Receive Date: 20110509
  Receipt Date: 20100507
  Transmission Date: 20111010
  Serious: No
  Sender: FDA-Public Use
  Company Number: US-ALEXION-A201000526

PATIENT
  Sex: Female

DRUGS (11)
  1. ATENOLOL [Concomitant]
     Dosage: 50 MG, QD
     Route: 048
  2. PLAVIX [Concomitant]
     Dosage: UNK
     Route: 048
  3. MAGNESIUM [Concomitant]
     Dosage: UNK
     Route: 048
  4. LOMOTIL                            /00034001/ [Concomitant]
     Dosage: UNK
     Route: 048
  5. SOLIRIS [Suspect]
     Indication: PAROXYSMAL NOCTURNAL HAEMOGLOBINURIA
     Dosage: 600 MG, QWKX4
     Route: 042
     Dates: start: 20080312, end: 20080401
  6. SOLIRIS [Suspect]
     Dosage: 900 MG, Q2WKS
     Route: 042
     Dates: start: 20080409
  7. CARDIAC THERAPY [Suspect]
     Dosage: UNK
     Route: 048
  8. VITAMIN A [Concomitant]
     Dosage: UNK
     Route: 048
  9. DIGOXIN [Concomitant]
     Dosage: 250 UG, QD
     Route: 048
  10. CARDIAC THERAPY [Suspect]
     Dosage: UNK
     Route: 048
  11. K-DUR [Concomitant]
     Dosage: UNK
     Route: 048

REACTIONS (1)
  - ASTHENIA [None]
